FAERS Safety Report 5611395-5 (Version None)
Quarter: 2008Q1

REPORT INFORMATION
  Report Type: 
  Country: None (occurrence: None)
  Receive Date: 20080201
  Receipt Date: 20080122
  Transmission Date: 20080703
  Serious: Yes (Hospitalization)
  Sender: FDA-Public Use
  Company Number: CH-ABBOTT-08P-151-0435026-00

PATIENT
  Age: 59 Year
  Sex: Male

DRUGS (17)
  1. DEPAKENE [Suspect]
     Indication: MANIA
     Route: 048
     Dates: start: 20070213, end: 20070301
  2. OLANZAPINE [Suspect]
     Indication: MANIA
     Route: 048
     Dates: start: 20070221, end: 20070221
  3. OLANZAPINE [Suspect]
     Route: 048
     Dates: start: 20070212, end: 20070220
  4. OLANZAPINE [Suspect]
     Route: 048
     Dates: start: 20070222, end: 20070222
  5. OLANZAPINE [Suspect]
     Route: 048
     Dates: start: 20070223, end: 20070223
  6. OLANZAPINE [Suspect]
     Route: 048
     Dates: start: 20070224, end: 20070224
  7. OLANZAPINE [Suspect]
     Route: 048
     Dates: start: 20070225, end: 20070225
  8. OLANZAPINE [Suspect]
     Route: 048
     Dates: start: 20070226, end: 20070227
  9. OLANZAPINE [Suspect]
     Route: 048
     Dates: start: 20070228, end: 20070304
  10. OLANZAPINE [Suspect]
     Route: 048
     Dates: start: 20070305, end: 20070305
  11. LORAZEPAM [Concomitant]
     Indication: MANIA
     Route: 048
     Dates: start: 20070221, end: 20070221
  12. LORAZEPAM [Concomitant]
     Route: 048
     Dates: start: 20070222, end: 20070222
  13. LORAZEPAM [Concomitant]
     Route: 048
     Dates: start: 20070223
  14. LORAZEPAM [Concomitant]
     Route: 048
     Dates: start: 20070225, end: 20070225
  15. LORAZEPAM [Concomitant]
     Route: 048
     Dates: start: 20070228, end: 20070301
  16. LORAZEPAM [Concomitant]
     Route: 048
     Dates: start: 20070302
  17. CARBAMAZEPINE [Concomitant]
     Indication: MANIA
     Route: 048
     Dates: start: 20070212, end: 20070226

REACTIONS (2)
  - DELIRIUM [None]
  - MANIA [None]
